FAERS Safety Report 6226580-1 (Version None)
Quarter: 2009Q2

REPORT INFORMATION
  Report Type: 
  Country: None (occurrence: None)
  Receive Date: 20090612
  Receipt Date: 20090515
  Transmission Date: 20091009
  Serious: Yes (Hospitalization)
  Sender: FDA-Public Use
  Company Number: US-ABBOTT-09P-163-0574416-00

PATIENT
  Sex: Female
  Weight: 61.29 kg

DRUGS (3)
  1. HUMIRA [Suspect]
     Indication: RHEUMATOID ARTHRITIS
     Route: 058
     Dates: start: 20040605, end: 20090401
  2. LABETALOL HCL [Concomitant]
     Indication: HYPERTENSION
  3. COZAAR [Concomitant]
     Indication: HYPERTENSION
     Route: 048

REACTIONS (3)
  - DRUG DOSE OMISSION [None]
  - GASTROENTERITIS VIRAL [None]
  - RHEUMATOID ARTHRITIS [None]
